FAERS Safety Report 10735903 (Version 1)
Quarter: 2015Q1

REPORT INFORMATION
  Report Type: Spontaneous
  Country: US (occurrence: None)
  Receive Date: 20150121
  Receipt Date: 20150121
  Transmission Date: 20150721
  Serious: Yes (Death)
  Sender: FDA-Public Use
  Company Number: 2015COV00013

PATIENT
  Age: 88 Year
  Sex: Female

DRUGS (3)
  1. WARFARIN (WARFARIN) UNKNOWN [Concomitant]
  2. DIGOXIN (DIGOXIN) UNKNOWN [Suspect]
     Active Substance: DIGOXIN
     Route: 048
  3. UNSPECIFIED THROMBIN INHAIBITOR (UNKNOWN) UNKNOWN [Concomitant]
     Route: 048

REACTIONS (1)
  - Death [None]
